FAERS Safety Report 7609366-2 (Version None)
Quarter: 2011Q3

REPORT INFORMATION
  Report Type: 
  Country: None (occurrence: None)
  Receive Date: 20110714
  Receipt Date: 20110708
  Transmission Date: 20111222
  Serious: Yes (Death, Hospitalization, Other)
  Sender: FDA-Public Use
  Company Number: PHHY2011FR60776

PATIENT
  Age: 55 Year
  Sex: Male

DRUGS (11)
  1. PREDNISONE [Suspect]
     Dosage: UNK
     Dates: start: 20091101, end: 20101209
  2. MABTHERA [Suspect]
     Dosage: 375 MG/M2 WEEKLY
     Dates: start: 20101130
  3. VORICONAZOLE [Concomitant]
     Dosage: UNK
     Dates: start: 20101207
  4. CERTICAN [Suspect]
     Indication: STEM CELL TRANSPLANT
     Dosage: UNK
     Dates: start: 20091215, end: 20100331
  5. MYFORTIC [Suspect]
     Indication: STEM CELL TRANSPLANT
     Dosage: UNK
     Dates: start: 20100208, end: 20100317
  6. AZATHIOPRINE SODIUM [Suspect]
     Dosage: UNK
     Dates: start: 20100817, end: 20101224
  7. MABTHERA [Suspect]
     Indication: EPSTEIN-BARR VIRUS INFECTION
     Dosage: 375 MG/M2 WEEKLY
     Dates: start: 20101123
  8. SULFADIAZINE [Concomitant]
     Dosage: UNK
     Dates: start: 20101207
  9. NEORAL [Suspect]
     Indication: STEM CELL TRANSPLANT
     Dosage: UNK
     Dates: start: 20091024, end: 20100202
  10. CYCLOPHOSPHAMIDE [Concomitant]
     Dosage: UNK
  11. PYRAZINAMIDE [Concomitant]
     Dosage: UNK
     Dates: start: 20101207

REACTIONS (15)
  - CSF PROTEIN INCREASED [None]
  - GRAFT VERSUS HOST DISEASE [None]
  - CEREBRAL TOXOPLASMOSIS [None]
  - LYMPHOCYTE COUNT DECREASED [None]
  - GENERAL PHYSICAL HEALTH DETERIORATION [None]
  - MUTISM [None]
  - NEUROLOGICAL DECOMPENSATION [None]
  - PYREXIA [None]
  - LUNG DISORDER [None]
  - CONFUSIONAL STATE [None]
  - DISORIENTATION [None]
  - EPSTEIN-BARR VIRUS INFECTION [None]
  - CENTRAL NERVOUS SYSTEM LESION [None]
  - CSF GLUCOSE DECREASED [None]
  - DYSPHAGIA [None]
